FAERS Safety Report 5389697-X (Version None)
Quarter: 2007Q3

REPORT INFORMATION
  Report Type: 
  Country: None (occurrence: None)
  Receive Date: 20070717
  Receipt Date: 20070706
  Transmission Date: 20080115
  Serious: Yes (Death)
  Sender: FDA-Public Use
  Company Number: JP-ELI_LILLY_AND_COMPANY-JP200707001726

PATIENT
  Age: 88 Year
  Sex: Female

DRUGS (8)
  1. RALOXIFENE HYDROCHLORIDE [Suspect]
     Indication: OSTEOPOROSIS POSTMENOPAUSAL
     Dosage: 60 MG, DAILY (1/D)
     Route: 048
     Dates: start: 20050608, end: 20070209
  2. CYTOTEC [Concomitant]
     Indication: OSTEOPOROSIS POSTMENOPAUSAL
     Dosage: 400 UG, DAILY (1/D)
     Route: 048
  3. RIMATIL [Concomitant]
     Indication: RHEUMATOID ARTHRITIS
     Dosage: 200 MG, DAILY (1/D)
     Route: 048
  4. MARZULENE S [Concomitant]
     Indication: GASTRITIS PROPHYLAXIS
     Dosage: 1 G, DAILY (1/D)
     Route: 048
  5. PREDNISOLONE [Concomitant]
     Indication: RHEUMATOID ARTHRITIS
     Dosage: 5 MG, DAILY (1/D)
     Route: 048
  6. PREDNISOLONE [Concomitant]
     Dosage: 2.5 MG, DAILY (1/D)
     Route: 048
  7. SELTOUCH [Concomitant]
     Indication: PAIN
     Dosage: 1 D/F, DAILY (1/D)
     Route: 062
  8. BREDININ [Concomitant]
     Indication: RHEUMATOID ARTHRITIS
     Dosage: 75 MG, DAILY (1/D)
     Route: 048

REACTIONS (1)
  - RENAL FAILURE CHRONIC [None]
